FAERS Safety Report 8052946-3 (Version None)
Quarter: 2012Q1

REPORT INFORMATION
  Report Type: 
  Country: None (occurrence: None)
  Receive Date: 20120118
  Receipt Date: 20120110
  Transmission Date: 20120608
  Serious: Yes (Hospitalization)
  Sender: FDA-Public Use
  Company Number: TR-MEDIMMUNE-MEDI-0014470

PATIENT
  Sex: Male
  Weight: 4.6 kg

DRUGS (2)
  1. SYNAGIS [Suspect]
     Route: 030
     Dates: start: 20111116, end: 20111116
  2. SYNAGIS [Suspect]
     Route: 030
     Dates: start: 20111229, end: 20111229

REACTIONS (3)
  - BRONCHITIS [None]
  - PYREXIA [None]
  - COUGH [None]
